FAERS Safety Report 4456215-X (Version None)
Quarter: 2004Q3

REPORT INFORMATION
  Report Type: 
  Country: None (occurrence: None)
  Receive Date: 20040902
  Receipt Date: 20040623
  Transmission Date: 20050211
  Serious: No
  Sender: FDA-Public Use
  Company Number: 200330249BWH

PATIENT
  Age: 70 Year
  Sex: Male
  Weight: 72.5755 kg

DRUGS (7)
  1. LEVITRA [Suspect]
     Indication: ERECTILE DYSFUNCTION
     Dosage: 20 MG, PRN, ORAL
     Route: 048
     Dates: start: 20031205
  2. LEVITRA [Suspect]
     Indication: ERECTILE DYSFUNCTION
     Dosage: 20 MG, PRN, ORAL
     Route: 048
     Dates: start: 20031210
  3. ERYTHROMYCIN [Concomitant]
  4. MULTI-VITAMIN [Concomitant]
  5. MINERAL SUPPLEMENTS [Concomitant]
  6. PURIFIED UREA [Concomitant]
  7. VIAGRA [Concomitant]

REACTIONS (3)
  - FEELING ABNORMAL [None]
  - MEMORY IMPAIRMENT [None]
  - THINKING ABNORMAL [None]
